FAERS Safety Report 10541681 (Version 2)
Quarter: 2014Q4

REPORT INFORMATION
  Report Type: Spontaneous
  Country: US (occurrence: US)
  Receive Date: 20141024
  Receipt Date: 20141024
  Transmission Date: 20150529
  Serious: No
  Sender: FDA-Public Use
  Company Number: US-ALLERGAN-1405450US

PATIENT
  Age: 66 Year
  Sex: Male

DRUGS (2)
  1. XALATAN [Concomitant]
     Active Substance: LATANOPROST
     Indication: GLAUCOMA
  2. ALPHAGAN P [Suspect]
     Active Substance: BRIMONIDINE TARTRATE
     Indication: GLAUCOMA TRAUMATIC
     Dosage: 1 GTT, SINGLE
     Route: 047
     Dates: start: 20140317, end: 20140317

REACTIONS (8)
  - Dry skin [Recovered/Resolved]
  - Eye pain [Recovering/Resolving]
  - Eyelid oedema [Recovering/Resolving]
  - Dysgeusia [Recovered/Resolved]
  - Vision blurred [Recovered/Resolved]
  - Foreign body sensation in eyes [Recovering/Resolving]
  - Eyelid ptosis [Recovering/Resolving]
  - Skin tightness [Recovered/Resolved]

NARRATIVE: CASE EVENT DATE: 20140317
